FAERS Safety Report 7057430-1 (Version None)
Quarter: 2010Q4

REPORT INFORMATION
  Report Type: 
  Country: None (occurrence: None)
  Receive Date: 20101021
  Receipt Date: 20101021
  Transmission Date: 20110411
  Serious: No
  Sender: FDA-Public Use
  Company Number: None

PATIENT
  Age: 56 Year
  Sex: Female

DRUGS (3)
  1. AUGMENTIN '125' [Suspect]
     Indication: LIVER INJURY
     Dates: start: 20081107, end: 20081116
  2. AZATHIOPRINE [Suspect]
     Indication: LIVER INJURY
     Dates: start: 20080916, end: 20090110
  3. NEBIVOLOL [Suspect]
     Indication: LIVER INJURY
     Dates: start: 20080826, end: 20090413

REACTIONS (7)
  - ALANINE AMINOTRANSFERASE INCREASED [None]
  - ASPARTATE AMINOTRANSFERASE INCREASED [None]
  - BLOOD BILIRUBIN [None]
  - BLOOD CREATINE PHOSPHOKINASE INCREASED [None]
  - CHOLESTASIS [None]
  - JAUNDICE [None]
  - LIVER INJURY [None]
